FAERS Safety Report 9160618 (Version 1)
Quarter: 2013Q1

REPORT INFORMATION
  Report Type: Spontaneous
  Country: US (occurrence: US)
  Receive Date: 20130313
  Receipt Date: 20130313
  Transmission Date: 20140127
  Serious: No
  Sender: FDA-Public Use
  Company Number: US-ABBOTT-05P-163-0285098-00

PATIENT
  Sex: Male
  Weight: 93 kg

DRUGS (2)
  1. DEPAKOTE [Suspect]
     Indication: BIPOLAR DISORDER
     Route: 048
     Dates: start: 1997, end: 1997
  2. DEPAKOTE [Suspect]
     Indication: DEPRESSION

REACTIONS (26)
  - Alopecia [Not Recovered/Not Resolved]
  - Dry skin [Not Recovered/Not Resolved]
  - Pyrexia [Recovered/Resolved]
  - Weight increased [Not Recovered/Not Resolved]
  - Gingival pain [Not Recovered/Not Resolved]
  - Fatigue [Not Recovered/Not Resolved]
  - Gastritis [Unknown]
  - Thyroid disorder [Unknown]
  - Hypothalamo-pituitary disorder [Unknown]
  - Sleep disorder [Unknown]
  - Hair disorder [Unknown]
  - Fungal infection [Unknown]
  - Red blood cell count decreased [Unknown]
  - Metabolic disorder [Unknown]
  - Oxygen saturation abnormal [Unknown]
  - Hypertension [Unknown]
  - Fluid retention [Unknown]
  - Pain in extremity [Unknown]
  - Muscle atrophy [Unknown]
  - Hiatus hernia [Unknown]
  - Oesophageal disorder [Unknown]
  - Obstruction [Unknown]
  - Vagus nerve disorder [Unknown]
  - Overweight [Unknown]
  - Dehydration [Unknown]
  - Adrenal disorder [Unknown]
